FAERS Safety Report 9276503 (Version 1)
Quarter: 2013Q2

REPORT INFORMATION
  Report Type: Spontaneous
  Country: US (occurrence: US)
  Receive Date: 20130507
  Receipt Date: 20130507
  Transmission Date: 20140414
  Serious: Yes (Hospitalization, Other)
  Sender: FDA-Public Use
  Company Number: US-BAYER-2013-047515

PATIENT
  Age: 83 Year
  Sex: Male
  Weight: 83.01 kg

DRUGS (11)
  1. XARELTO [Suspect]
     Indication: ATRIAL FIBRILLATION
     Dosage: 20 MG, QD
     Route: 048
     Dates: start: 20121226, end: 201303
  2. XARELTO [Suspect]
     Indication: CEREBROVASCULAR ACCIDENT PROPHYLAXIS
     Dosage: 20 MG, QD
     Route: 048
     Dates: start: 201303, end: 201303
  3. ACETYLSALICYLIC ACID({=100 MG) [Suspect]
     Dosage: 81 MG, UNK
  4. CYMBALTA [Concomitant]
     Indication: DEPRESSION
     Dosage: 60 MG, UNK
     Route: 048
  5. XANAX [Concomitant]
     Indication: ANXIETY
     Dosage: 1 MG, UNK
     Route: 065
  6. OMEPRAZOLE [Concomitant]
     Dosage: 20 MG, BID
     Route: 048
  7. SUCRALFATE [Concomitant]
     Dosage: 1 G, QID
     Route: 048
  8. ALPRAZOLAM [Concomitant]
     Dosage: 1 MG, UNK
     Route: 048
  9. COUMADIN [Concomitant]
     Dosage: 5 MG, UNK
     Route: 048
  10. DRONEDARONE [Concomitant]
     Route: 065
  11. CARAFATE [Concomitant]
     Dosage: 1 G, QID
     Route: 065

REACTIONS (5)
  - Gastrointestinal haemorrhage [Recovering/Resolving]
  - Hypotension [Recovered/Resolved]
  - Gastritis [Unknown]
  - Gastrooesophageal reflux disease [Unknown]
  - Anaemia [Recovered/Resolved]
